FAERS Safety Report 17201012 (Version 1)
Quarter: 2019Q4

REPORT INFORMATION
  Report Type: Spontaneous
  Country: GB (occurrence: GB)
  Receive Date: 20191226
  Receipt Date: 20191226
  Transmission Date: 20200122
  Serious: Yes (Hospitalization, Other)
  Sender: FDA-Public Use
  Company Number: GB-GLAXOSMITHKLINE-GB2019EME232234

PATIENT

DRUGS (1)
  1. VENTOLIN [Suspect]
     Active Substance: ALBUTEROL SULFATE
     Indication: LOWER RESPIRATORY TRACT INFECTION
     Dosage: UNK

REACTIONS (11)
  - Lip swelling [Recovering/Resolving]
  - Poor quality sleep [Unknown]
  - Swollen tongue [Recovering/Resolving]
  - Pneumonia [Unknown]
  - Dizziness [Unknown]
  - Dyspnoea [Unknown]
  - Musculoskeletal pain [Unknown]
  - Throat tightness [Unknown]
  - Hypersensitivity [Unknown]
  - Aphonia [Unknown]
  - Arthritis [Unknown]
